FAERS Safety Report 12805898 (Version 5)
Quarter: 2017Q4

REPORT INFORMATION
  Report Type: Spontaneous
  Country: US (occurrence: US)
  Receive Date: 20161004
  Receipt Date: 20171211
  Transmission Date: 20180320
  Serious: Yes (Hospitalization)
  Sender: FDA-Public Use
  Company Number: US-PFIZER INC-2016460073

PATIENT
  Age: 69 Year
  Sex: Male
  Weight: 120 kg

DRUGS (10)
  1. XELJANZ [Suspect]
     Active Substance: TOFACITINIB CITRATE
     Dosage: 5 MG, 2X/DAY
     Route: 048
     Dates: start: 2016
  2. XELJANZ [Suspect]
     Active Substance: TOFACITINIB CITRATE
     Indication: RHEUMATOID ARTHRITIS
     Dosage: 5 MG, 2X/DAY
     Route: 048
     Dates: start: 2016
  3. BISOPROLOL FUMARATE. [Concomitant]
     Active Substance: BISOPROLOL FUMARATE
     Dosage: 10 MG, 1X/DAY
     Route: 048
  4. KLOR-CON M20 [Concomitant]
     Active Substance: POTASSIUM CHLORIDE
     Dosage: 20 MEQ, 1X/DAY
     Route: 048
     Dates: start: 2016
  5. HYDROXYCHLOR [Concomitant]
     Active Substance: HYDROXYCHLOROQUINE
     Indication: PAIN
     Dosage: 200 MG, 1X/DAY
     Route: 048
  6. TRAMADOL. [Concomitant]
     Active Substance: TRAMADOL
     Indication: PAIN
     Dosage: 100 MG (TWO 50MG TABLETS), 3X/DAY
     Route: 048
     Dates: start: 201603
  7. LASIX [Concomitant]
     Active Substance: FUROSEMIDE
     Indication: PRURITUS
     Dosage: 20 MG, AS NEEDED
     Route: 048
     Dates: start: 201608
  8. HYDROXYZINE HCL [Concomitant]
     Active Substance: HYDROXYZINE HYDROCHLORIDE
     Indication: PRURITUS
     Dosage: 50 MG, 3X/DAY
     Route: 048
  9. LASIX [Concomitant]
     Active Substance: FUROSEMIDE
     Indication: SWELLING
  10. METFORMIN [Concomitant]
     Active Substance: METFORMIN HYDROCHLORIDE
     Dosage: 500 MG, 1X/DAY WITH SUPPER
     Route: 048
     Dates: start: 201601

REACTIONS (5)
  - Arthralgia [Recovering/Resolving]
  - Drug ineffective [Not Recovered/Not Resolved]
  - Pain in extremity [Recovering/Resolving]
  - Osteoarthritis [Recovered/Resolved]
  - Carpal tunnel syndrome [Not Recovered/Not Resolved]

NARRATIVE: CASE EVENT DATE: 2016
